FAERS Safety Report 25921777 (Version 1)
Quarter: 2025Q4

REPORT INFORMATION
  Report Type: Other
  Country: EU (occurrence: EU)
  Receive Date: 20251014
  Receipt Date: 20251014
  Transmission Date: 20260117
  Serious: Yes (Life-Threatening)
  Sender: Steriscience PTE
  Company Number: None

PATIENT
  Age: 93 Year
  Sex: Male
  Weight: 68 kg

DRUGS (13)
  1. MEROPENEM [Suspect]
     Active Substance: MEROPENEM
     Indication: Pneumonia
     Dosage: 1 GRAM, Q8H
     Route: 042
     Dates: start: 20250921, end: 20250923
  2. CALCIFEDIOL [Concomitant]
     Active Substance: CALCIFEDIOL
     Indication: Product used for unknown indication
     Dosage: UNK, HYDROFEROL 0.266 MG SOFT CAPSULES, 10 CAPSULES (BLISTER AL/AL)
     Route: 065
  3. BISOPROLOL [Concomitant]
     Active Substance: BISOPROLOL
     Indication: Product used for unknown indication
     Dosage: UNK, EMCONCOR COR 2.5 MG FILM-COATED TABLETS, 28 TABLETS
     Route: 065
  4. FERROUS SULFATE [Concomitant]
     Active Substance: FERROUS SULFATE
     Indication: Product used for unknown indication
     Dosage: UNK, TARDYFERON 80 MG EXTENDED-RELEASE TABLETS, 30 TABLETS
     Route: 065
  5. SERTRALINE [Concomitant]
     Active Substance: SERTRALINE HYDROCHLORIDE
     Indication: Product used for unknown indication
     Dosage: UNK, SERTRALINE 50 MG 30 TABLETS
     Route: 065
  6. TAMSULOSIN HYDROCHLORIDE [Concomitant]
     Active Substance: TAMSULOSIN HYDROCHLORIDE
     Indication: Product used for unknown indication
     Dosage: UNK, TAMSULOSIN 0.4 MG 30 MODIFIED-RELEASE TABLETS
     Route: 065
  7. SIMVASTATIN [Concomitant]
     Active Substance: SIMVASTATIN
     Indication: Product used for unknown indication
     Dosage: UNK, SIMVASTATIN 20 MG 28 TABLETS
     Route: 065
  8. ESOMEPRAZOLE [Concomitant]
     Active Substance: ESOMEPRAZOLE
     Indication: Product used for unknown indication
     Dosage: UNK, ESOMEPRAZOL 20 MG 28 C?PSULAS
     Route: 065
  9. ACETAMINOPHEN [Concomitant]
     Active Substance: ACETAMINOPHEN
     Indication: Product used for unknown indication
     Dosage: UNK, PARACETAMOL 1,000 MG 40 TABLETS
     Route: 065
  10. Noctamid [Concomitant]
     Indication: Product used for unknown indication
     Dosage: UNK, NOCTAMID 1 MG TABLETS, 30 TABLETS
     Route: 065
  11. EDOXABAN TOSYLATE [Concomitant]
     Active Substance: EDOXABAN TOSYLATE
     Indication: Product used for unknown indication
     Dosage: UNK, LIXIANA 30 MG FILM-COATED TABLETS, 28 TABLETS
     Route: 065
  12. ENOXAPARIN SODIUM [Concomitant]
     Active Substance: ENOXAPARIN SODIUM
     Indication: Product used for unknown indication
     Dosage: UNK, INHIXA 6,000 IU (60 MG)/0.6 ML INJECTABLE SOLUTION
     Route: 065
  13. AZITHROMYCIN DIHYDRATE [Concomitant]
     Active Substance: AZITHROMYCIN DIHYDRATE
     Indication: Product used for unknown indication
     Dosage: UNK
     Route: 065

REACTIONS (3)
  - Toxic encephalopathy [None]
  - Generalised tonic-clonic seizure [None]
  - Myoclonic epilepsy [None]

NARRATIVE: CASE EVENT DATE: 20250923
